FAERS Safety Report 21596952 (Version 8)
Quarter: 2023Q1

REPORT INFORMATION
  Report Type: Spontaneous
  Country: CO (occurrence: CO)
  Receive Date: 20221115
  Receipt Date: 20230203
  Transmission Date: 20230418
  Serious: Yes (Other)
  Sender: FDA-Public Use
  Company Number: CO-PFIZER INC-PV202200099515

PATIENT
  Age: 11 Year
  Sex: Female

DRUGS (1)
  1. GENOTROPIN [Suspect]
     Active Substance: SOMATROPIN
     Dosage: 1.2 MG
     Route: 058

REACTIONS (6)
  - Device leakage [Unknown]
  - Drug ineffective [Unknown]
  - Circumstance or information capable of leading to device use error [Unknown]
  - Tremor [Unknown]
  - Blood pressure decreased [Unknown]
  - Needle issue [Unknown]
